FAERS Safety Report 10633442 (Version 1)
Quarter: 2014Q4

REPORT INFORMATION
  Report Type: Spontaneous
  Country: ES (occurrence: ES)
  Receive Date: 20141205
  Receipt Date: 20141205
  Transmission Date: 20150529
  Serious: Yes (Other)
  Sender: FDA-Public Use
  Company Number: PHHY2014ES157484

PATIENT
  Age: 82 Year
  Sex: Male

DRUGS (2)
  1. PARACETAMOL [Suspect]
     Active Substance: ACETAMINOPHEN
     Indication: PRODUCT USED FOR UNKNOWN INDICATION
     Route: 065
  2. PARACETAMOL [Suspect]
     Active Substance: ACETAMINOPHEN
     Indication: UPPER RESPIRATORY TRACT INFECTION

REACTIONS (10)
  - Neutrophilia [Recovered/Resolved]
  - Myalgia [Unknown]
  - Pyrexia [Recovered/Resolved]
  - Headache [Unknown]
  - Eosinophilia [Recovered/Resolved]
  - Malaise [Recovered/Resolved]
  - Neutrophilic dermatosis [Recovered/Resolved]
  - Skin plaque [Recovered/Resolved]
  - Eczema [Recovered/Resolved]
  - Asthenia [Recovered/Resolved]
